FAERS Safety Report 4967149-6 (Version None)
Quarter: 2006Q2

REPORT INFORMATION
  Report Type: 
  Country: None (occurrence: None)
  Receive Date: 20060403
  Receipt Date: 20060321
  Transmission Date: 20061013
  Serious: Yes (Other)
  Sender: FDA-Public Use
  Company Number: 2006026600

PATIENT
  Age: 72 Year
  Sex: Male
  Weight: 77.1115 kg

DRUGS (2)
  1. LIPITOR (ATORVASTATIN) [Suspect]
     Indication: HYPERCHOLESTEROLAEMIA
     Dosage: 40 MG (40 MG, 1 IN 1 D), ORAL
     Route: 048
  2. FLOMAX [Concomitant]

REACTIONS (10)
  - ALANINE AMINOTRANSFERASE INCREASED [None]
  - ASPARTATE AMINOTRANSFERASE INCREASED [None]
  - BLOOD SODIUM DECREASED [None]
  - CARDIAC STRESS TEST ABNORMAL [None]
  - CORONARY ARTERY OCCLUSION [None]
  - DYSPNOEA [None]
  - FATIGUE [None]
  - MYOCARDIAL ISCHAEMIA [None]
  - PLATELET COUNT DECREASED [None]
  - VENTRICULAR EXTRASYSTOLES [None]
